FAERS Safety Report 4725945-4 (Version None)
Quarter: 2005Q3

REPORT INFORMATION
  Report Type: 
  Country: None (occurrence: None)
  Receive Date: 20050727
  Receipt Date: 20050719
  Transmission Date: 20060218
  Serious: Yes (Life-Threatening, Hospitalization, Other)
  Sender: FDA-Public Use
  Company Number: US-GLAXOSMITHKLINE-A0566806A

PATIENT
  Age: 42 Year
  Sex: Male
  Weight: 103.6 kg

DRUGS (2)
  1. COREG [Suspect]
     Indication: HYPERTENSION
     Dosage: 6.25MG PER DAY
     Route: 048
     Dates: start: 20050708, end: 20050719
  2. WELLBUTRIN [Concomitant]

REACTIONS (14)
  - ANAEMIA [None]
  - ANISOCYTOSIS [None]
  - DYSPNOEA [None]
  - ERYTHEMA [None]
  - HAEMATOCRIT DECREASED [None]
  - HAEMOGLOBIN DECREASED [None]
  - HAEMOLYTIC ANAEMIA [None]
  - JAUNDICE [None]
  - LYMPHOMA [None]
  - POLYCHROMASIA [None]
  - RED BLOOD CELL COUNT DECREASED [None]
  - RETICULOCYTE COUNT INCREASED [None]
  - RETICULOCYTE PERCENTAGE INCREASED [None]
  - WHITE BLOOD CELL DISORDER [None]
